FAERS Safety Report 13570458 (Version 2)
Quarter: 2017Q2

REPORT INFORMATION
  Report Type: Spontaneous
  Country: IT (occurrence: IT)
  Receive Date: 20170522
  Receipt Date: 20170526
  Transmission Date: 20170830
  Serious: Yes (Death, Hospitalization, Other)
  Sender: FDA-Public Use
  Company Number: IT-009507513-1705ITA009141

PATIENT
  Age: 44 Year
  Sex: Female

DRUGS (2)
  1. NUVARING [Suspect]
     Active Substance: ETHINYL ESTRADIOL\ETONOGESTREL
     Indication: PREMATURE MENOPAUSE
     Dosage: VAGINA RING
     Route: 067
     Dates: start: 20110720
  2. LUTENYL [Suspect]
     Active Substance: NOMEGESTROL ACETATE
     Indication: PREMATURE MENOPAUSE
     Dosage: UNK
     Dates: start: 20110720

REACTIONS (2)
  - Off label use [Unknown]
  - Ischaemic stroke [Fatal]

NARRATIVE: CASE EVENT DATE: 20110720
